FAERS Safety Report 15044066 (Version 1)
Quarter: 2018Q2

REPORT INFORMATION
  Report Type: Spontaneous
  Country: US (occurrence: US)
  Receive Date: 20180621
  Receipt Date: 20180621
  Transmission Date: 20180711
  Serious: Yes (Other)
  Sender: FDA-Public Use
  Company Number: US-TEVA-2018-US-910374

PATIENT
  Age: 12 Year
  Sex: Male

DRUGS (4)
  1. PREDNISOLONE. [Suspect]
     Active Substance: PREDNISOLONE
     Indication: DERMATITIS ATOPIC
     Dosage: PREDNISOLONE 15MG/5ML, CONSUMING A SPOONFUL OF PREDNISOLONE ORAL SOLUTION FOR TWO TO THREE TIMES ...
     Route: 048
  2. TRIAMCINOLONE [Concomitant]
     Active Substance: TRIAMCINOLONE
     Indication: DERMATITIS ATOPIC
     Dosage: ON AFFECTED AREAS TWICE A WEEK
     Route: 061
  3. MOMETASONE [Concomitant]
     Active Substance: MOMETASONE
     Indication: DERMATITIS ATOPIC
     Dosage: 15 MG/MO
     Route: 065
  4. PIMECROLIMUS [Concomitant]
     Active Substance: PIMECROLIMUS
     Indication: DERMATITIS ATOPIC
     Dosage: 15 MG/MO
     Route: 065

REACTIONS (5)
  - Adrenal suppression [Unknown]
  - Intentional product misuse [Unknown]
  - Cushing^s syndrome [Unknown]
  - Drug-induced liver injury [Unknown]
  - Insulin resistance [Unknown]
